FAERS Safety Report 8203709-7 (Version None)
Quarter: 2012Q1

REPORT INFORMATION
  Report Type: 
  Country: None (occurrence: None)
  Receive Date: 20120308
  Receipt Date: 20120229
  Transmission Date: 20120608
  Serious: Yes (Death, Hospitalization)
  Sender: FDA-Public Use
  Company Number: 2012AP000559

PATIENT
  Age: 63 Year
  Sex: Female

DRUGS (6)
  1. BECOTIDE (BECLOMETASON DIPROPIONATE) [Concomitant]
  2. LOPERAMIDE [Concomitant]
  3. SULFASALAZINE [Concomitant]
  4. METHOTREXATE [Concomitant]
  5. LEFLUNOMIDE [Suspect]
     Indication: RHEUMATOID ARTHRITIS
     Dosage: 20 MG;  ; PO; QD
     Route: 048
     Dates: start: 20110901, end: 20111212
  6. LANSOPRAZOLE [Concomitant]

REACTIONS (10)
  - GENERAL PHYSICAL HEALTH DETERIORATION [None]
  - BACTERIAL INFECTION [None]
  - PULMONARY EMBOLISM [None]
  - PULMONARY FIBROSIS [None]
  - LUNG DISORDER [None]
  - RESPIRATORY FAILURE [None]
  - RESPIRATORY TRACT INFECTION [None]
  - CONDITION AGGRAVATED [None]
  - PNEUMOCYSTIS JIROVECI PNEUMONIA [None]
  - DYSPNOEA [None]
